FAERS Safety Report 13277312 (Version 1)
Quarter: 2017Q1

REPORT INFORMATION
  Report Type: Spontaneous
  Country: RS (occurrence: RS)
  Receive Date: 20170228
  Receipt Date: 20170228
  Transmission Date: 20170428
  Serious: Yes (Death, Hospitalization)
  Sender: FDA-Public Use
  Company Number: RS-UNICHEM LABORATORIES LIMITED-UCM201702-000056

PATIENT
  Age: 26 Year
  Sex: Female

DRUGS (4)
  1. DIAZEPAM. [Suspect]
     Active Substance: DIAZEPAM
  2. LAMOTRIGINE. [Suspect]
     Active Substance: LAMOTRIGINE
  3. CLOZAPINE. [Suspect]
     Active Substance: CLOZAPINE
  4. HALOPERIDOL. [Suspect]
     Active Substance: HALOPERIDOL

REACTIONS (5)
  - Hallucination, visual [Unknown]
  - Depressed mood [Unknown]
  - Death [Fatal]
  - Pulmonary embolism [Unknown]
  - Hallucination, auditory [Unknown]
